FAERS Safety Report 14703781 (Version 1)
Quarter: 2018Q2

REPORT INFORMATION
  Report Type: Spontaneous
  Country: US (occurrence: US)
  Receive Date: 20180402
  Receipt Date: 20180402
  Transmission Date: 20180711
  Serious: No
  Sender: FDA-Public Use
  Company Number: US-MISSION PHARMACAL COMPANY-2044927

PATIENT
  Age: 73 Year
  Sex: Male

DRUGS (1)
  1. THIOLA [Suspect]
     Active Substance: TIOPRONIN
     Indication: AMINO ACID METABOLISM DISORDER
     Route: 065
     Dates: start: 20170317

REACTIONS (1)
  - Drug ineffective [Unknown]
